FAERS Safety Report 14493109 (Version 2)
Quarter: 2018Q1

REPORT INFORMATION
  Report Type: Other
  Country: SI (occurrence: SI)
  Receive Date: 20180206
  Receipt Date: 20180320
  Transmission Date: 20180509
  Serious: Yes (Other)
  Sender: FDA-Public Use
  Company Number: SI-GLENMARK PHARMACEUTICALS-2017GMK031352

PATIENT

DRUGS (7)
  1. ENTRESTO [Suspect]
     Active Substance: SACUBITRIL\VALSARTAN
     Dosage: (24/26 MG) 2 DF, UNK
     Route: 065
  2. SPIRONOLACTONE. [Suspect]
     Active Substance: SPIRONOLACTONE
     Indication: CARDIAC FAILURE
     Dosage: UNK
     Route: 065
  3. ROSUVASTATIN CALCIUM. [Suspect]
     Active Substance: ROSUVASTATIN CALCIUM
     Indication: CARDIAC FAILURE
     Dosage: UNK
     Route: 065
  4. BISOPROLOL [Suspect]
     Active Substance: BISOPROLOL
     Indication: CARDIAC FAILURE
     Dosage: UNK
     Route: 065
  5. FUROSEMIDE. [Suspect]
     Active Substance: FUROSEMIDE
     Indication: CARDIAC FAILURE
     Dosage: UNK
     Route: 065
  6. RAMIPRIL SANDOZ [Suspect]
     Active Substance: RAMIPRIL
     Indication: CARDIAC FAILURE
     Dosage: UNK
     Route: 065
  7. ENTRESTO [Suspect]
     Active Substance: SACUBITRIL\VALSARTAN
     Indication: CARDIAC FAILURE
     Dosage: 2 DF, QD
     Route: 065

REACTIONS (5)
  - Hypotension [Recovered/Resolved]
  - Dizziness [Recovered/Resolved]
  - Gait disturbance [Unknown]
  - Choking [Recovered/Resolved]
  - Fall [Unknown]

NARRATIVE: CASE EVENT DATE: 201708
